FAERS Safety Report 19741342 (Version 1)
Quarter: 2021Q3

REPORT INFORMATION
  Report Type: Spontaneous
  Country: CN (occurrence: CN)
  Receive Date: 20210824
  Receipt Date: 20210824
  Transmission Date: 20211014
  Serious: No
  Sender: FDA-Public Use
  Company Number: CN-LUPIN PHARMACEUTICALS INC.-2021-15542

PATIENT
  Age: 44 Year
  Sex: Female
  Weight: 43 kg

DRUGS (5)
  1. VORICONAZOLE TABLET [Suspect]
     Active Substance: VORICONAZOLE
     Dosage: 100 MILLIGRAM, BID ADJUSTED
     Route: 048
  2. VORICONAZOLE TABLET [Suspect]
     Active Substance: VORICONAZOLE
     Indication: BRONCHOPULMONARY ASPERGILLOSIS
     Dosage: 200 MILLIGRAM, BID
     Route: 048
     Dates: start: 20190122
  3. VORICONAZOLE TABLET [Suspect]
     Active Substance: VORICONAZOLE
     Dosage: 200 MILLIGRAM, BID
     Route: 048
  4. LEFLUNOMIDE. [Concomitant]
     Active Substance: LEFLUNOMIDE
     Indication: RHEUMATOID ARTHRITIS
     Dosage: 10 MILLIGRAM, QD
     Route: 065
  5. METOPROLOL. [Concomitant]
     Active Substance: METOPROLOL
     Indication: SINUS TACHYCARDIA
     Dosage: 47.5 MILLIGRAM, QD (CONTROLLED RELEASE)
     Route: 065

REACTIONS (1)
  - Hyperlipidaemia [Recovered/Resolved]
